FAERS Safety Report 4584203-1 (Version None)
Quarter: 2005Q1

REPORT INFORMATION
  Report Type: 
  Country: None (occurrence: None)
  Receive Date: 20050216
  Receipt Date: 20050112
  Transmission Date: 20050727
  Serious: Yes (Hospitalization)
  Sender: FDA-Public Use
  Company Number: FR-GLAXOSMITHKLINE-B0364819A

PATIENT
  Age: 65 Year
  Sex: Female

DRUGS (10)
  1. TOPOTECAN [Suspect]
     Indication: OVARIAN CANCER
     Dosage: 4MG PER DAY
     Route: 042
     Dates: start: 20041221
  2. GEMCITABINE [Suspect]
     Indication: OVARIAN CANCER
     Dosage: 1600MG PER DAY
     Route: 042
     Dates: start: 20041221
  3. ZOPHREN [Concomitant]
     Route: 065
  4. LIPANTHYL [Concomitant]
     Route: 065
  5. ESBERIVEN [Concomitant]
     Route: 065
  6. PRAXILENE [Concomitant]
     Route: 065
  7. PREVISCAN [Concomitant]
     Route: 065
     Dates: end: 20050118
  8. PLITICAN [Concomitant]
     Route: 065
  9. DEXAMETHASONE [Concomitant]
     Route: 065
  10. FRAGMIN [Concomitant]
     Dosage: 2500IU PER DAY
     Route: 042
     Dates: start: 20050119

REACTIONS (5)
  - GASTROINTESTINAL MOTILITY DISORDER [None]
  - INFREQUENT BOWEL MOVEMENTS [None]
  - NAUSEA [None]
  - SUBILEUS [None]
  - VOMITING [None]
